FAERS Safety Report 12104716 (Version 1)
Quarter: 2016Q1

REPORT INFORMATION
  Report Type: Spontaneous
  Country: HR (occurrence: HR)
  Receive Date: 20160223
  Receipt Date: 20160223
  Transmission Date: 20160526
  Serious: Yes (Other)
  Sender: FDA-Public Use
  Company Number: HR-TEVA-635594ACC

PATIENT
  Age: 77 Year
  Sex: Female
  Weight: 90 kg

DRUGS (6)
  1. CEFALIN 500 MG CAPSULE [Suspect]
     Active Substance: CEPHALEXIN
     Indication: FINGER DEFORMITY
     Dosage: 2000 MILLIGRAM DAILY;
     Route: 048
     Dates: start: 20160202, end: 20160203
  2. EUTHYROX [Concomitant]
     Active Substance: LEVOTHYROXINE SODIUM
  3. MARTEFARIN [Concomitant]
     Active Substance: WARFARIN
     Route: 048
  4. TINIDIL [Concomitant]
  5. OLICARD [Concomitant]
  6. CARVETREND [Concomitant]
     Active Substance: CARVEDILOL
     Dosage: 6.25 MILLIGRAM DAILY;

REACTIONS (8)
  - Hypersensitivity [Recovered/Resolved]
  - Chest pain [Recovered/Resolved]
  - Periorbital oedema [Recovered/Resolved]
  - Choking [Recovered/Resolved]
  - Arthralgia [Recovered/Resolved]
  - Pruritus [Recovered/Resolved]
  - Sneezing [Recovered/Resolved]
  - Cough [Recovered/Resolved]

NARRATIVE: CASE EVENT DATE: 20160202
